FAERS Safety Report 10482671 (Version 2)
Quarter: 2014Q4

REPORT INFORMATION
  Report Type: Report from Study
  Country: CA (occurrence: CA)
  Receive Date: 20140929
  Receipt Date: 20141001
  Transmission Date: 20150528
  Serious: Yes (Death)
  Sender: FDA-Public Use
  Company Number: PHHY2014CA126475

PATIENT
  Age: 72 Year
  Sex: Male

DRUGS (11)
  1. DILTIAZEM [Concomitant]
     Active Substance: DILTIAZEM
     Dosage: UNK UKN, UNK
  2. CLOZARIL [Suspect]
     Active Substance: CLOZAPINE
     Dosage: UKN
     Route: 048
     Dates: start: 20080110
  3. FLORINEF ACETATE [Concomitant]
     Active Substance: FLUDROCORTISONE ACETATE
     Dosage: UNK UKN, UNK
  4. QUETIAPINE [Concomitant]
     Active Substance: QUETIAPINE
     Dosage: UNK
  5. COMTAN [Concomitant]
     Active Substance: ENTACAPONE
     Dosage: 200 MG
  6. SINEMET CR [Concomitant]
     Active Substance: CARBIDOPA\LEVODOPA
     Dosage: 200/ 50 UKN
  7. FLOMAX [Concomitant]
     Active Substance: TAMSULOSIN HYDROCHLORIDE
     Dosage: UNK UKN, UNK
  8. SINEMET [Concomitant]
     Active Substance: CARBIDOPA\LEVODOPA
     Dosage: 200/50 MG, 6.5 TABLETS DAILY
  9. SOFLAX [Concomitant]
     Active Substance: DOCUSATE
     Dosage: UNK UKN, UNK
  10. VITAMIN D [Concomitant]
     Active Substance: CHOLECALCIFEROL
     Dosage: UNK UKN, UNK
  11. AMIODARONE [Concomitant]
     Active Substance: AMIODARONE
     Dosage: UNK UKN, UNK

REACTIONS (1)
  - Death [Fatal]

NARRATIVE: CASE EVENT DATE: 201407
